FAERS Safety Report 6229327-8 (Version None)
Quarter: 2009Q2

REPORT INFORMATION
  Report Type: 
  Country: None (occurrence: None)
  Receive Date: 20090615
  Receipt Date: 20090605
  Transmission Date: 20091009
  Serious: Yes (Other)
  Sender: FDA-Public Use
  Company Number: US-MYLANLABS-2009S1010026

PATIENT
  Age: 82 Year
  Sex: Male
  Weight: 68.04 kg

DRUGS (10)
  1. FENTANYL TRANSDERMAL SYSTEM [Suspect]
     Indication: BACK PAIN
     Dosage: CHANGED PATCHES Q48 HOURS
     Route: 062
     Dates: start: 20050101
  2. BUMEX [Concomitant]
     Indication: FLUID RETENTION
     Route: 048
  3. PAXIL [Concomitant]
     Indication: DEPRESSION
     Route: 048
  4. PRAVACHOL [Concomitant]
     Route: 048
  5. TOPROL-XL [Concomitant]
     Indication: BLOOD PRESSURE INCREASED
     Route: 048
  6. NEXIUM [Concomitant]
     Route: 048
  7. ZYPREXA [Concomitant]
     Route: 048
  8. AGGRENOX [Concomitant]
     Route: 048
  9. IPRATROPIUM BROMIDE AND ALBUTEROL SULFATE INHALATION SOLUTION [Concomitant]
     Route: 055
  10. SPIRIVA [Concomitant]

REACTIONS (5)
  - BACK PAIN [None]
  - DRUG INEFFECTIVE [None]
  - FEELING JITTERY [None]
  - HYPERHIDROSIS [None]
  - TREMOR [None]
